FAERS Safety Report 7703980-1 (Version None)
Quarter: 2011Q3

REPORT INFORMATION
  Report Type: 
  Country: None (occurrence: None)
  Receive Date: 20110823
  Receipt Date: 20110812
  Transmission Date: 20111222
  Serious: Yes (Other)
  Sender: FDA-Public Use
  Company Number: BR-JNJFOC-20110806830

PATIENT
  Age: 56 Year
  Sex: Female

DRUGS (9)
  1. ENALAPRIL MALEATE [Concomitant]
     Route: 065
  2. ATENOLOL [Concomitant]
     Route: 065
  3. ACETYLSALICYLIC ACID SRT [Concomitant]
     Route: 065
  4. ACETAMINOPHEN [Concomitant]
     Route: 065
  5. OMEPRAZOLE [Concomitant]
     Route: 065
  6. REMICADE [Suspect]
     Indication: RHEUMATOID ARTHRITIS
     Route: 042
     Dates: start: 20070505
  7. ARAVA [Concomitant]
     Route: 065
  8. SIMAVASTATIN [Concomitant]
     Route: 065
  9. PREDNISOLONE [Concomitant]
     Route: 065

REACTIONS (2)
  - JOINT SWELLING [None]
  - MYOCARDIAL INFARCTION [None]
